FAERS Safety Report 15130028 (Version 1)
Quarter: 2018Q3

REPORT INFORMATION
  Report Type: Spontaneous
  Country: US (occurrence: US)
  Receive Date: 20180711
  Receipt Date: 20180711
  Transmission Date: 20181010
  Serious: Yes (Hospitalization)
  Sender: FDA-Public Use
  Company Number: PHHY2018US034021

PATIENT
  Age: 10 Month
  Sex: Female

DRUGS (1)
  1. GLIPIZIDE. [Suspect]
     Active Substance: GLIPIZIDE
     Indication: PRODUCT USED FOR UNKNOWN INDICATION
     Dosage: 10 MG, UNK
     Route: 048

REACTIONS (3)
  - Hypoglycaemia [Recovered/Resolved]
  - Mental status changes [Recovered/Resolved]
  - Accidental exposure to product by child [Unknown]
